FAERS Safety Report 11228803 (Version 1)
Quarter: 2015Q2

REPORT INFORMATION
  Report Type: Spontaneous
  Country: US (occurrence: US)
  Receive Date: 20150630
  Receipt Date: 20150630
  Transmission Date: 20150821
  Serious: No
  Sender: FDA-Public Use
  Company Number: US-PURDUE-USA-2014-0115939

PATIENT
  Age: 42 Year
  Sex: Female

DRUGS (2)
  1. DRONABINOL CAPSULES [Suspect]
     Active Substance: DRONABINOL
     Dosage: 5 MG, DAILY
     Route: 048
     Dates: start: 201406
  2. DRONABINOL CAPSULES [Suspect]
     Active Substance: DRONABINOL
     Indication: VOMITING
     Dosage: 5 MG, BID
     Route: 048
     Dates: start: 201406

REACTIONS (3)
  - Nausea [Not Recovered/Not Resolved]
  - Hyperhidrosis [Not Recovered/Not Resolved]
  - Drug ineffective [Not Recovered/Not Resolved]
